FAERS Safety Report 5868960-X (Version None)
Quarter: 2008Q3

REPORT INFORMATION
  Report Type: 
  Country: None (occurrence: None)
  Receive Date: 20080828
  Receipt Date: 20080819
  Transmission Date: 20090109
  Serious: Yes (Death, Hospitalization)
  Sender: FDA-Public Use
  Company Number: 2008AL009652

PATIENT
  Age: 84 Year
  Sex: Female

DRUGS (9)
  1. DIGOXIN [Suspect]
     Dosage: 0.125MG, DAILY PO
     Route: 048
  2. ALDACTONE [Concomitant]
  3. COLLPIZIDE (THERAPY UNSPECIFIED) [Concomitant]
  4. DIOVAN [Concomitant]
  5. CARDIZEM [Concomitant]
  6. K-DUR [Concomitant]
  7. CLONIDINE [Concomitant]
  8. AMBIEN [Concomitant]
  9. ASCORBIC ACID [Concomitant]

REACTIONS (4)
  - CARDIAC FAILURE CONGESTIVE [None]
  - DIALYSIS [None]
  - RENAL FAILURE [None]
  - RESPIRATORY FAILURE [None]
